FAERS Safety Report 4550321-7 (Version None)
Quarter: 2004Q4

REPORT INFORMATION
  Report Type: 
  Country: None (occurrence: None)
  Receive Date: 20041217
  Receipt Date: 20040810
  Transmission Date: 20050328
  Serious: No
  Sender: FDA-Public Use
  Company Number: 2004-BP-05747BP

PATIENT
  Age: 70 Year
  Sex: Female

DRUGS (1)
  1. SPIRIVA HANDIHLER (TIOTROPIUM BROMIDE) [Suspect]
     Dosage: (18 MCG) IH
     Route: 055
     Dates: end: 20040713

REACTIONS (1)
  - VISION BLURRED [None]
